FAERS Safety Report 23483290 (Version 1)
Quarter: 2024Q1

REPORT INFORMATION
  Report Type: Report from Study
  Country: BE (occurrence: BE)
  Receive Date: 20240205
  Receipt Date: 20240205
  Transmission Date: 20240410
  Serious: Yes (Other)
  Sender: FDA-Public Use
  Company Number: BE-Merck Healthcare KGaA-2024004458

PATIENT
  Age: 78 Year
  Sex: Female

DRUGS (2)
  1. TEPOTINIB [Suspect]
     Active Substance: TEPOTINIB
     Indication: Non-small cell lung cancer
     Dates: start: 20210507
  2. TEPOTINIB [Suspect]
     Active Substance: TEPOTINIB
     Dates: start: 20220404

REACTIONS (1)
  - Renal failure [Recovering/Resolving]
